FAERS Safety Report 8476417-5 (Version None)
Quarter: 2012Q2

REPORT INFORMATION
  Report Type: 
  Country: None (occurrence: None)
  Receive Date: 20120628
  Receipt Date: 20120626
  Transmission Date: 20120825
  Serious: Yes (Other)
  Sender: FDA-Public Use
  Company Number: PHHY2012AU053825

PATIENT
  Sex: Male

DRUGS (5)
  1. PHOSPHATE [Concomitant]
     Dosage: 3.1 MG/KG, PER DAY
  2. HEPARIN [Suspect]
     Indication: ARTERIAL THROMBOSIS
     Dosage: 20 IU/KG, PER HOUR
     Route: 042
  3. PENTA-VITE INFANT VITAMINS [Concomitant]
     Dosage: 0.9 ML, QD
  4. HEPARIN [Suspect]
     Dosage: 631 IU/KG, PER DAY
  5. HEPARIN [Suspect]
     Dosage: MAXIMUM DOSE OF 32 IU/KG/HOUR
     Route: 042

REACTIONS (3)
  - HUMERUS FRACTURE [None]
  - ULNA FRACTURE [None]
  - FIBULA FRACTURE [None]
